FAERS Safety Report 16266655 (Version 1)
Quarter: 2019Q2

REPORT INFORMATION
  Report Type: Spontaneous
  Country: FR (occurrence: FR)
  Receive Date: 20190502
  Receipt Date: 20190502
  Transmission Date: 20190711
  Serious: Yes (Hospitalization)
  Sender: FDA-Public Use
  Company Number: FR-PFIZER INC-2019182724

PATIENT
  Age: 87 Year
  Sex: Female
  Weight: 48.6 kg

DRUGS (3)
  1. TOVIAZ [Suspect]
     Active Substance: FESOTERODINE FUMARATE
     Indication: URINARY INCONTINENCE
     Dosage: 2 DF, 1X/DAY
     Route: 048
     Dates: end: 20180219
  2. HAVLANE [Suspect]
     Active Substance: LOPRAZOLAM
     Dosage: 1 MG, 1X/DAY
     Route: 048
     Dates: end: 20180219
  3. MIANSERINE [MIANSERIN HYDROCHLORIDE] [Suspect]
     Active Substance: MIANSERIN HYDROCHLORIDE
     Dosage: 10 MG, 1X/DAY
     Route: 048
     Dates: end: 20180219

REACTIONS (1)
  - Confusional state [Recovering/Resolving]

NARRATIVE: CASE EVENT DATE: 201802
